FAERS Safety Report 5171300-5 (Version None)
Quarter: 2006Q4

REPORT INFORMATION
  Report Type: 
  Country: None (occurrence: None)
  Receive Date: 20061213
  Receipt Date: 20051014
  Transmission Date: 20070319
  Serious: Yes (Hospitalization)
  Sender: FDA-Public Use
  Company Number: US-AMGEN-US154351

PATIENT
  Sex: Male

DRUGS (2)
  1. ENBREL [Suspect]
     Indication: PSORIATIC ARTHROPATHY
     Dates: start: 20030301, end: 20050801
  2. MOBIC [Concomitant]
     Dates: start: 20050815

REACTIONS (3)
  - ARTHRITIS BACTERIAL [None]
  - OSTEOMYELITIS [None]
  - SEPSIS [None]
